FAERS Safety Report 11484920 (Version 1)
Quarter: 2015Q3

REPORT INFORMATION
  Report Type: Spontaneous
  Country: US (occurrence: US)
  Receive Date: 20150903
  Receipt Date: 20150903
  Transmission Date: 20151125
  Serious: No
  Sender: FDA-Public Use
  Company Number: US-ELI_LILLY_AND_COMPANY-US201209000753

PATIENT
  Age: 45 Year
  Sex: Female

DRUGS (3)
  1. CYMBALTA [Suspect]
     Active Substance: DULOXETINE HYDROCHLORIDE
     Indication: DEPRESSION
     Dosage: 60 MG, QD
     Dates: start: 201206, end: 201208
  2. GLUCOPHAGE [Concomitant]
     Active Substance: METFORMIN HYDROCHLORIDE
  3. BYETTA [Concomitant]
     Active Substance: EXENATIDE

REACTIONS (8)
  - Headache [Unknown]
  - Irritability [Unknown]
  - Back pain [Unknown]
  - Drug withdrawal syndrome [Unknown]
  - Anger [Unknown]
  - Crying [Unknown]
  - Vision blurred [Unknown]
  - Paraesthesia [Unknown]

NARRATIVE: CASE EVENT DATE: 201208
